FAERS Safety Report 26203048 (Version 1)
Quarter: 2025Q4

REPORT INFORMATION
  Report Type: Spontaneous
  Country: US (occurrence: US)
  Receive Date: 20251226
  Receipt Date: 20251226
  Transmission Date: 20260118
  Serious: No
  Sender: BAYER HEALTHCARE PHARMACEUTICALS INC.
  Company Number: US-BAYER-2025A168152

PATIENT
  Age: 23 Year
  Sex: Male

DRUGS (2)
  1. PRAZIQUANTEL [Suspect]
     Active Substance: PRAZIQUANTEL
     Indication: Neurocysticercosis
     Route: 048
  2. ALBENDAZOLE [Concomitant]
     Active Substance: ALBENDAZOLE
     Indication: Neurocysticercosis

REACTIONS (3)
  - Product use in unapproved indication [None]
  - Product prescribing issue [None]
  - Drug ineffective for unapproved indication [None]
